FAERS Safety Report 7542697-3 (Version None)
Quarter: 2011Q2

REPORT INFORMATION
  Report Type: 
  Country: None (occurrence: None)
  Receive Date: 20110613
  Receipt Date: 20110603
  Transmission Date: 20111010
  Serious: Yes (Other)
  Sender: FDA-Public Use
  Company Number: BR-JNJFOC-20110500956

PATIENT
  Sex: Female
  Weight: 50 kg

DRUGS (6)
  1. MICARDIS [Concomitant]
     Indication: HYPERTENSION
     Route: 048
     Dates: start: 20010101
  2. PENTOXIFYLLINE [Concomitant]
     Indication: RETINAL VASCULAR THROMBOSIS
     Route: 048
     Dates: start: 20010101
  3. NICORETTE [Suspect]
     Indication: SMOKING CESSATION THERAPY
     Route: 048
     Dates: start: 20080101
  4. NICORETTE [Suspect]
     Indication: SMOKING CESSATION THERAPY
     Route: 048
  5. ESOMEPRAZOLE MAGNESIUM [Concomitant]
     Indication: ASTHMA
     Route: 048
     Dates: start: 20010101
  6. ASPIRIN [Concomitant]
     Indication: RETINAL VASCULAR THROMBOSIS
     Route: 048
     Dates: start: 20010101

REACTIONS (3)
  - DEPENDENCE [None]
  - DRUG INEFFECTIVE [None]
  - INTENTIONAL DRUG MISUSE [None]
